FAERS Safety Report 21792951 (Version 1)
Quarter: 2022Q4

REPORT INFORMATION
  Report Type: Spontaneous
  Country: FR (occurrence: FR)
  Receive Date: 20221229
  Receipt Date: 20221229
  Transmission Date: 20230113
  Serious: Yes (Other)
  Sender: FDA-Public Use
  Company Number: FR-ALKEM LABORATORIES LIMITED-FR-ALKEM-2022-14185

PATIENT
  Age: 1 Month
  Sex: Female
  Weight: 3.82 kg

DRUGS (4)
  1. SIROLIMUS [Suspect]
     Active Substance: SIROLIMUS
     Indication: Hyperinsulinism
     Dosage: (INITIAL DOSE OF 0.5-1 MG/SQ.M OF BODY SURFACE AREA PER DAY), SYRUP IN A CONCENTRATION OF 1 MG/ML, Q
     Route: 065
  2. SIROLIMUS [Suspect]
     Active Substance: SIROLIMUS
     Dosage: 1.2 MILLILITRE PER SQUARE METRE, QD (MAXIMAL DOSAGE 1.2 MG/SQ.M. D, TROUGH LEVEL- 8.7-15.3 (11.2) MI
     Route: 065
  3. OCTREOTIDE [Concomitant]
     Active Substance: OCTREOTIDE
     Indication: Hyperinsulinism
     Dosage: 20 MICROGRAM/KILOGRAM, QD
     Route: 065
  4. DEXTROSE [Concomitant]
     Active Substance: DEXTROSE
     Indication: Hyperinsulinism
     Dosage: 15.9 MILLIGRAM/KILOGRAM MIN
     Route: 065

REACTIONS (3)
  - Sepsis [Unknown]
  - Post procedural sepsis [Unknown]
  - Drug ineffective for unapproved indication [Unknown]
